FAERS Safety Report 9311167 (Version 1)
Quarter: 2013Q2

REPORT INFORMATION
  Report Type: Report from Study
  Country: US (occurrence: US)
  Receive Date: 20130528
  Receipt Date: 20130528
  Transmission Date: 20140414
  Serious: Yes (Other)
  Sender: FDA-Public Use
  Company Number: US-JNJFOC-20130514573

PATIENT
  Sex: Male
  Weight: 66.68 kg

DRUGS (3)
  1. REMICADE [Suspect]
     Indication: PSORIATIC ARTHROPATHY
     Route: 042
  2. SORIATANE [Concomitant]
     Indication: PSORIASIS
     Route: 048
     Dates: end: 2013
  3. MORPHINE [Concomitant]
     Indication: ARTHRALGIA
     Route: 048
     Dates: start: 2012

REACTIONS (4)
  - Dental caries [Recovered/Resolved]
  - Tooth injury [Recovered/Resolved]
  - Gingival inflammation [Unknown]
  - Sinusitis [Recovered/Resolved]
